FAERS Safety Report 12932197 (Version 1)
Quarter: 2016Q4

REPORT INFORMATION
  Report Type: Spontaneous
  Country: JP (occurrence: JP)
  Receive Date: 20161111
  Receipt Date: 20161111
  Transmission Date: 20170207
  Serious: Yes (Death, Other)
  Sender: FDA-Public Use
  Company Number: JP-TAKEDA-2016TJP018487AA

PATIENT
  Sex: Female

DRUGS (2)
  1. NESINA [Suspect]
     Active Substance: ALOGLIPTIN BENZOATE
     Indication: DIABETES MELLITUS
     Dosage: UNK
     Route: 048
     Dates: end: 201605
  2. ZAFATEK TABLETS 100 MG [Suspect]
     Active Substance: TRELAGLIPTIN SUCCINATE
     Indication: DIABETES MELLITUS
     Dosage: 100 MG, 1/WEEK
     Route: 048
     Dates: start: 201605

REACTIONS (1)
  - Pancreatic carcinoma [Fatal]
